FAERS Safety Report 6435818-7 (Version None)
Quarter: 2009Q4

REPORT INFORMATION
  Report Type: 
  Country: None (occurrence: None)
  Receive Date: 20091111
  Receipt Date: 20091109
  Transmission Date: 20100525
  Serious: Yes (Other)
  Sender: FDA-Public Use
  Company Number: US-BRISTOL-MYERS SQUIBB COMPANY-14848576

PATIENT
  Age: 51 Year
  Sex: Female
  Weight: 77 kg

DRUGS (8)
  1. ABILIFY [Suspect]
     Indication: DEPRESSION
  2. PROZAC [Concomitant]
  3. ZOLOFT [Concomitant]
  4. LEXAPRO [Concomitant]
  5. SEROQUEL [Concomitant]
  6. GEODON [Concomitant]
  7. PRISTIQ [Concomitant]
  8. ZYPREXA [Concomitant]

REACTIONS (2)
  - PNEUMONIA [None]
  - WHITE BLOOD CELL COUNT DECREASED [None]
